FAERS Safety Report 7352090-4 (Version None)
Quarter: 2011Q1

REPORT INFORMATION
  Report Type: 
  Country: None (occurrence: None)
  Receive Date: 20110315
  Receipt Date: 20110308
  Transmission Date: 20110831
  Serious: Yes (Hospitalization, Disabling, Other)
  Sender: FDA-Public Use
  Company Number: US-ELI_LILLY_AND_COMPANY-US201103002877

PATIENT
  Sex: Female

DRUGS (2)
  1. HUMALOG [Suspect]
     Indication: DIABETES MELLITUS
     Dosage: UNK, AS NEEDED
     Dates: start: 19950101
  2. LANTUS [Concomitant]
     Dosage: 15 U, EACH MORNING

REACTIONS (7)
  - JOINT INJURY [None]
  - FALL [None]
  - SPEECH DISORDER [None]
  - PAIN [None]
  - HIP ARTHROPLASTY [None]
  - HEMIPARESIS [None]
  - CEREBROVASCULAR ACCIDENT [None]
